FAERS Safety Report 19542273 (Version 2)
Quarter: 2025Q2

REPORT INFORMATION
  Report Type: Report from Study
  Country: DE (occurrence: DE)
  Receive Date: 20210714
  Receipt Date: 20250625
  Transmission Date: 20250717
  Serious: Yes (Other)
  Sender: AUROBINDO
  Company Number: DE-VIIV HEALTHCARE LIMITED-DE2021GSK138167

PATIENT
  Age: 50 Year
  Sex: Male

DRUGS (3)
  1. LAMIVUDINE [Suspect]
     Active Substance: LAMIVUDINE
     Indication: HIV infection
     Route: 065
  2. NEVIRAPINE [Suspect]
     Active Substance: NEVIRAPINE
     Indication: HIV infection
     Route: 065
  3. ABACAVIR SULFATE [Suspect]
     Active Substance: ABACAVIR SULFATE
     Indication: HIV infection
     Route: 065

REACTIONS (5)
  - Stress fracture [Unknown]
  - Tibia fracture [Unknown]
  - Fracture malunion [Unknown]
  - Bone metabolism disorder [Unknown]
  - Loss of anatomical alignment after fracture reduction [Unknown]
